FAERS Safety Report 19818241 (Version 2)
Quarter: 2021Q4

REPORT INFORMATION
  Report Type: Spontaneous
  Country: CA (occurrence: CA)
  Receive Date: 20210911
  Receipt Date: 20211217
  Transmission Date: 20220303
  Serious: Yes (Life-Threatening, Other)
  Sender: FDA-Public Use
  Company Number: CA-TEVA-2021-CA-1950469

PATIENT
  Age: 1 Year
  Sex: Male

DRUGS (32)
  1. ETOPOSIDE [Suspect]
     Active Substance: ETOPOSIDE
     Indication: Acute myeloid leukaemia
     Route: 065
  2. ETOPOSIDE [Suspect]
     Active Substance: ETOPOSIDE
     Route: 065
  3. CYTARABINE [Suspect]
     Active Substance: CYTARABINE
     Indication: Acute myeloid leukaemia
     Route: 065
  4. CYTARABINE [Suspect]
     Active Substance: CYTARABINE
     Route: 065
  5. DAUNORUBICIN [Suspect]
     Active Substance: DAUNORUBICIN
     Indication: Acute myeloid leukaemia
     Route: 065
  6. DAUNORUBICIN [Suspect]
     Active Substance: DAUNORUBICIN
     Route: 065
  7. MITOXANTRONE [Suspect]
     Active Substance: MITOXANTRONE HYDROCHLORIDE
     Indication: Acute myeloid leukaemia
     Route: 065
  8. ACETAMINOPHEN [Concomitant]
     Active Substance: ACETAMINOPHEN
  9. ALLOPURINOL [Concomitant]
     Active Substance: ALLOPURINOL
  10. ALTEPLASE [Concomitant]
     Active Substance: ALTEPLASE
  11. CETIRIZINE [Concomitant]
     Active Substance: CETIRIZINE HYDROCHLORIDE
  12. CIPROFLOXACIN [Concomitant]
     Active Substance: CIPROFLOXACIN
  13. DIMENHYDRINATE [Concomitant]
     Active Substance: DIMENHYDRINATE
  14. DIPHENHYDRAMINE [Concomitant]
     Active Substance: DIPHENHYDRAMINE
  15. FLUCONAZOLE [Concomitant]
     Active Substance: FLUCONAZOLE
  16. FUROSEMIDE [Concomitant]
     Active Substance: FUROSEMIDE
     Route: 065
  17. HEPARIN CALCIUM [Concomitant]
     Active Substance: HEPARIN CALCIUM
     Route: 065
  18. LORAZEPAM [Concomitant]
     Active Substance: LORAZEPAM
  19. MEROPENEM [Concomitant]
     Active Substance: MEROPENEM
  20. METHYLPREDNISOLONE [Concomitant]
     Active Substance: METHYLPREDNISOLONE
  21. METOCLOPRAMIDE [Concomitant]
     Active Substance: METOCLOPRAMIDE
  22. METRONIDAZOLE [Concomitant]
     Active Substance: METRONIDAZOLE
  23. MORPHINE SULFATE [Concomitant]
     Active Substance: MORPHINE SULFATE
  24. MYCAMINE [Concomitant]
     Active Substance: MICAFUNGIN SODIUM
  25. ONDANSETRON [Concomitant]
     Active Substance: ONDANSETRON
  26. POLYETHYLENE GLYCOL [Concomitant]
     Active Substance: POLYETHYLENE GLYCOL
  27. PREDNISONE [Concomitant]
     Active Substance: PREDNISONE
  28. RANITIDINE [Concomitant]
     Active Substance: RANITIDINE
  29. SULFAMETHOXAZOLE AND TRIMETHOPRIM [Concomitant]
     Active Substance: SULFAMETHOXAZOLE\TRIMETHOPRIM
     Route: 065
  30. VANCOMYCIN [Concomitant]
     Active Substance: VANCOMYCIN
  31. ZINC [Concomitant]
     Active Substance: ZINC
  32. MITOXANTRONE [Concomitant]
     Active Substance: MITOXANTRONE HYDROCHLORIDE

REACTIONS (6)
  - Aplastic anaemia [Unknown]
  - Bacteraemia [Unknown]
  - Febrile neutropenia [Unknown]
  - Platelet count decreased [Unknown]
  - Thrombocytopenia [Unknown]
  - Product use issue [Unknown]
